FAERS Safety Report 13941912 (Version 1)
Quarter: 2017Q3

REPORT INFORMATION
  Report Type: Spontaneous
  Country: US (occurrence: US)
  Receive Date: 20170905
  Receipt Date: 20170905
  Transmission Date: 20171127
  Serious: Yes (Other)
  Sender: FDA-Public Use
  Company Number: None

PATIENT
  Age: 29 Year
  Sex: Female
  Weight: 74.25 kg

DRUGS (1)
  1. NUVARING [Suspect]
     Active Substance: ETHINYL ESTRADIOL\ETONOGESTREL
     Indication: CONTRACEPTION
     Dosage: ?          QUANTITY:1 RING;OTHER FREQUENCY:ONE EVERY THREE WE;?
     Dates: start: 20160201

REACTIONS (3)
  - Internal haemorrhage [None]
  - Ectopic pregnancy with contraceptive device [None]
  - Maternal exposure timing unspecified [None]

NARRATIVE: CASE EVENT DATE: 20170101
